FAERS Safety Report 7322781 (Version 3)
Quarter: 2012Q4

REPORT INFORMATION
  Report Type: 
  Country: JP (occurrence: JP)
  Receive Date: 20100317
  Receipt Date: 20120829
  Transmission Date: 20130627
  Serious: Yes (Death, Hospitalization, Other)
  Sender: FDA-Public Use
  Company Number: JP-ELI_LILLY_AND_COMPANY-JP201003003572

PATIENT
  Age: 73 Year
  Sex: Male
  Weight: 41.8 kg

DRUGS (14)
  1. ALIMTA [Suspect]
     Indication: LUNG ADENOCARCINOMA RECURRENT
     Dosage: 650 mg, other
     Route: 042
     Dates: start: 20090731, end: 20090731
  2. PANVITAN [Concomitant]
     Dosage: 1 g, daily (1/D)
     Route: 048
     Dates: start: 20090717, end: 20090813
  3. METHYCOBAL [Concomitant]
     Dosage: 1 mg, other
     Route: 030
     Dates: start: 20090717, end: 20090717
  4. NORVASC [Concomitant]
     Indication: HYPERTENSION
     Dosage: 5 mg, daily (1/D)
     Route: 048
     Dates: end: 20090812
  5. CERCINE [Concomitant]
     Indication: DIZZINESS
     Dosage: 2 mg, 3/D
     Route: 048
     Dates: end: 20090812
  6. TAKEPRON [Concomitant]
     Indication: GASTRITIS PROPHYLAXIS
     Dosage: 30 mg, daily (1/D)
     Route: 048
     Dates: start: 20081220, end: 20090812
  7. NOVAMIN [Concomitant]
     Indication: PROPHYLAXIS OF NAUSEA AND VOMITING
     Dosage: 5 mg, 3/D
     Route: 048
     Dates: start: 20090204, end: 20090812
  8. OXYCONTIN [Concomitant]
     Indication: PAIN
     Dosage: 15 mg, 3/D
     Route: 048
     Dates: start: 20090204, end: 20090811
  9. GASMOTIN [Concomitant]
     Indication: DYSGEUSIA
     Dosage: 5 mg, 3/D
     Route: 048
     Dates: start: 20090403, end: 20090812
  10. METHYCOBAL [Concomitant]
     Indication: HYPOAESTHESIA
     Dosage: 500 ug, 3/D
     Route: 048
     Dates: start: 20090417, end: 20090812
  11. DEPAKENE-R [Concomitant]
     Indication: PAIN
     Dosage: 200 mg, 2/D
     Route: 048
     Dates: start: 20090529, end: 20090812
  12. LAXOBERON [Concomitant]
     Indication: CONSTIPATION
     Dosage: 15 D/F, daily (1/D)
     Route: 048
     Dates: start: 20090605, end: 20090813
  13. NAIXAN [Concomitant]
     Indication: PAIN
     Dosage: 200 mg, 3/D
     Route: 048
     Dates: start: 20090626, end: 20090812
  14. CRAVIT [Concomitant]
     Indication: INFECTION PROPHYLAXIS
     Dosage: 200 mg, 2/D
     Route: 048
     Dates: start: 20090807, end: 20090810

REACTIONS (5)
  - Interstitial lung disease [Fatal]
  - Thrombocytopenia [Not Recovered/Not Resolved]
  - Anaemia [Not Recovered/Not Resolved]
  - Oral candidiasis [Unknown]
  - Neutropenia [Recovered/Resolved]
